FAERS Safety Report 6507965-2 (Version None)
Quarter: 2009Q4

REPORT INFORMATION
  Report Type: 
  Country: None (occurrence: None)
  Receive Date: 20091221
  Receipt Date: 20091216
  Transmission Date: 20100525
  Serious: Yes (Hospitalization)
  Sender: FDA-Public Use
  Company Number: B0617685A

PATIENT
  Sex: Male

DRUGS (2)
  1. CLAVULIN [Suspect]
     Indication: INFECTIOUS MONONUCLEOSIS
     Route: 048
     Dates: start: 20091118, end: 20091125
  2. TACHIPIRINA [Concomitant]

REACTIONS (5)
  - ALANINE AMINOTRANSFERASE INCREASED [None]
  - ASPARTATE AMINOTRANSFERASE INCREASED [None]
  - LEUKOCYTOCLASTIC VASCULITIS [None]
  - LIVER DISORDER [None]
  - PURPURA [None]
